FAERS Safety Report 23231670 (Version 2)
Quarter: 2023Q4

REPORT INFORMATION
  Report Type: Spontaneous
  Country: GR (occurrence: None)
  Receive Date: 20231127
  Receipt Date: 20231205
  Transmission Date: 20240110
  Serious: Yes (Disabling)
  Sender: FDA-Public Use
  Company Number: 2023A259399

PATIENT
  Sex: Female

DRUGS (6)
  1. FASENRA [Suspect]
     Active Substance: BENRALIZUMAB
     Route: 058
  2. OZEMPIC [Concomitant]
     Active Substance: SEMAGLUTIDE
     Dosage: INJ.SOL 1MG/0,74 (1 DOSE) 1,34MG/ML PEN TYPE X1,5ML 1 INJECTION X 1 TIME PER WEEK X 30 DAYS
     Dates: start: 20220817
  3. SYNJARDY [Concomitant]
     Active Substance: EMPAGLIFLOZIN\METFORMIN HYDROCHLORIDE
     Indication: Type 2 diabetes mellitus
     Dosage: 1 TAB (5+1000)MG X 2 TIMES A DAY X 30 DAYS
     Dates: start: 20180710
  4. SPIRIVA RESPIMAT [Concomitant]
     Active Substance: TIOTROPIUM BROMIDE
     Indication: Diabetes mellitus
     Dates: start: 20180321
  5. DEXA-RHINASPRAY-N NASPR.SUS ( [Concomitant]
     Indication: Vasomotor rhinitis
     Dates: start: 20231109
  6. SYMBICORT [Concomitant]
     Active Substance: BUDESONIDE\FORMOTEROL FUMARATE DIHYDRATE
     Indication: Asthma
     Dates: start: 20131219

REACTIONS (1)
  - Genital infection fungal [Unknown]
